FAERS Safety Report 5252000-X (Version None)
Quarter: 2007Q1

REPORT INFORMATION
  Report Type: 
  Country: None (occurrence: None)
  Receive Date: 20070226
  Receipt Date: 20070212
  Transmission Date: 20070707
  Serious: Yes (Other)
  Sender: FDA-Public Use
  Company Number: PAR_1371_2007

PATIENT

DRUGS (3)
  1. IBUPROFEN [Suspect]
     Dosage: DF
  2. ACETAMINOPHEN [Suspect]
     Dosage: DF
  3. VALERIAN [Suspect]
     Dosage: DF

REACTIONS (3)
  - EPSTEIN-BARR VIRUS INFECTION [None]
  - HEPATITIS CHOLESTATIC [None]
  - LYMPHOCYTE MORPHOLOGY ABNORMAL [None]
